FAERS Safety Report 9916419 (Version 2)
Quarter: 2014Q1

REPORT INFORMATION
  Report Type: Spontaneous
  Country: US (occurrence: US)
  Receive Date: 20140221
  Receipt Date: 20140306
  Transmission Date: 20141002
  Serious: No
  Sender: FDA-Public Use
  Company Number: US-009507513-1402USA009096

PATIENT
  Sex: Female

DRUGS (2)
  1. PUREGON PEN [Suspect]
     Indication: PRODUCT USED FOR UNKNOWN INDICATION
  2. FOLLISTIM AQ CARTRIDGE [Suspect]

REACTIONS (4)
  - Injection site bruising [Unknown]
  - Device malfunction [Unknown]
  - Drug dose omission [Unknown]
  - Underdose [Unknown]
